FAERS Safety Report 13089029 (Version 1)
Quarter: 2017Q1

REPORT INFORMATION
  Report Type: Spontaneous
  Country: US (occurrence: US)
  Receive Date: 20170105
  Receipt Date: 20170105
  Transmission Date: 20170428
  Serious: No
  Sender: FDA-Public Use
  Company Number: US-PERRIGO-16US014949

PATIENT
  Age: 63 Year
  Sex: Female
  Weight: 81.63 kg

DRUGS (1)
  1. GUAIFENESIN. [Suspect]
     Active Substance: GUAIFENESIN
     Indication: RESPIRATORY TRACT CONGESTION
     Dosage: 600 OR 1200 MG, PRN
     Route: 048
     Dates: start: 201603, end: 201604

REACTIONS (2)
  - Sputum decreased [Not Recovered/Not Resolved]
  - Deficiency of bile secretion [Not Recovered/Not Resolved]

NARRATIVE: CASE EVENT DATE: 201603
